FAERS Safety Report 8761103 (Version 2)
Quarter: 2012Q4

REPORT INFORMATION
  Report Type: 
  Country: US (occurrence: US)
  Receive Date: 20120830
  Receipt Date: 20120920
  Transmission Date: 20130627
  Serious: Yes (Hospitalization, Other)
  Sender: FDA-Public Use
  Company Number: US-ASTRAZENECA-2012SE60847

PATIENT
  Age: 62 Year
  Sex: Female

DRUGS (1)
  1. SYMBICORT PMDI [Suspect]
     Route: 055

REACTIONS (1)
  - Cerebrovascular accident [Unknown]
